FAERS Safety Report 4421348-0 (Version None)
Quarter: 2004Q3

REPORT INFORMATION
  Report Type: 
  Country: None (occurrence: None)
  Receive Date: 20040804
  Receipt Date: 20040726
  Transmission Date: 20050211
  Serious: Yes (Other)
  Sender: FDA-Public Use
  Company Number: 2004225407AU

PATIENT
  Sex: Female

DRUGS (4)
  1. EDRONAX (REBOXETINE METHANESULPHANATE) TABLET [Suspect]
     Dosage: 10 MG, BID
     Dates: start: 20031001
  2. XANAX [Suspect]
     Dosage: 6 MG
  3. SERTRALINE HYDROCHLORIDE [Suspect]
  4. CITALOPRAM HYDROBROMIDE [Concomitant]

REACTIONS (12)
  - DRUG INEFFECTIVE [None]
  - DRY MOUTH [None]
  - FEELING ABNORMAL [None]
  - HYPERHIDROSIS [None]
  - INSOMNIA [None]
  - MENTAL IMPAIRMENT [None]
  - MOVEMENT DISORDER [None]
  - NECK PAIN [None]
  - PAIN [None]
  - SEXUAL ACTIVITY INCREASED [None]
  - SUICIDAL IDEATION [None]
  - THINKING ABNORMAL [None]
